FAERS Safety Report 7946152-8 (Version None)
Quarter: 2011Q4

REPORT INFORMATION
  Report Type: 
  Country: None (occurrence: None)
  Receive Date: 20111129
  Receipt Date: 20111122
  Transmission Date: 20120403
  Serious: Yes (Hospitalization)
  Sender: FDA-Public Use
  Company Number: JP-GLAXOSMITHKLINE-B0749723A

PATIENT
  Sex: Female
  Weight: 53 kg

DRUGS (6)
  1. TANATRIL [Concomitant]
     Dosage: 2.5MG PER DAY
     Route: 048
  2. LEVOTHYROXINE SODIUM [Concomitant]
     Dosage: 50MCG PER DAY
     Route: 048
  3. DEZOLAM [Concomitant]
     Dosage: 1.5MG PER DAY
     Route: 048
  4. LAC B [Concomitant]
     Dosage: 3G PER DAY
     Route: 048
     Dates: start: 20110804, end: 20110808
  5. PROMACTA [Suspect]
     Indication: IDIOPATHIC THROMBOCYTOPENIC PURPURA
     Dosage: 12.5MG PER DAY
     Route: 048
     Dates: start: 20110720, end: 20110826
  6. OZEX [Concomitant]
     Indication: CYSTITIS
     Dosage: 450MG PER DAY
     Route: 048
     Dates: start: 20110804, end: 20110808

REACTIONS (1)
  - PURPURA [None]
